FAERS Safety Report 7572088-0 (Version None)
Quarter: 2011Q2

REPORT INFORMATION
  Report Type: 
  Country: None (occurrence: None)
  Receive Date: 20110624
  Receipt Date: 20110617
  Transmission Date: 20111010
  Serious: Yes (Death, Hospitalization)
  Sender: FDA-Public Use
  Company Number: US-PFIZER INC-2011067286

PATIENT
  Sex: Female

DRUGS (8)
  1. SUTENT [Suspect]
     Indication: FIBROUS HISTIOCYTOMA
     Dosage: 37.5 MG, UNK
     Route: 048
  2. COENZYME Q10 [Concomitant]
     Indication: IMMUNE ENHANCEMENT THERAPY
     Dosage: 200 MG, 1X/DAY
     Route: 048
     Dates: start: 20100630
  3. SUTENT [Suspect]
     Indication: METASTASES TO LUNG
  4. VITAMIN D [Concomitant]
     Indication: IMMUNE ENHANCEMENT THERAPY
     Dosage: UNK
     Dates: start: 20110121
  5. LOVAZA [Concomitant]
     Indication: CHEMOTHERAPY
     Dosage: UNK
     Dates: start: 20100630
  6. K-DUR [Concomitant]
     Dosage: 20 MG, 1 TAB, 1X/DAY
  7. GLYBURIDE [Concomitant]
     Indication: DIABETES MELLITUS
     Dosage: 5MG/500, 1TAB, 1X/DAY
  8. ATENOLOL [Concomitant]
     Dosage: 50 MG, 1X/DAY

REACTIONS (4)
  - DYSPNOEA EXERTIONAL [None]
  - DEATH [None]
  - INFLUENZA LIKE ILLNESS [None]
  - OROPHARYNGEAL PAIN [None]
